FAERS Safety Report 8843195 (Version 1)
Quarter: 2012Q4

REPORT INFORMATION
  Report Type: 
  Country: US (occurrence: US)
  Receive Date: 20121016
  Receipt Date: 20121016
  Transmission Date: 20130627
  Serious: No
  Sender: FDA-Public Use
  Company Number: US-VERTEX PHARMACEUTICAL INC.-2012-022152

PATIENT
  Age: 20 Year
  Sex: Female
  Weight: 54 kg

DRUGS (7)
  1. INCIVEK [Suspect]
     Indication: HEPATITIS C
     Dosage: 750 mg, tid
     Route: 048
     Dates: start: 20120925
  2. PEGASYS [Suspect]
     Indication: HEPATITIS C
     Dosage: 180 ?g, UNK
     Route: 058
     Dates: start: 20120925
  3. RIBASPHERE [Suspect]
     Indication: HEPATITIS C
     Dosage: 400mg am-600 mg pm
     Route: 048
     Dates: start: 20120925
  4. MULTIVITAMIN                       /00097801/ [Concomitant]
     Dosage: 1 DF, qd
     Route: 048
  5. VITAMIN C                          /00008001/ [Concomitant]
     Dosage: UNK, qd
     Route: 048
  6. PROMETHAZINE [Concomitant]
     Dosage: UNK, prn
     Route: 048
  7. IBUPROFEN [Concomitant]
     Dosage: 400 mg, tid
     Route: 048

REACTIONS (9)
  - Headache [Recovered/Resolved]
  - Chest discomfort [Not Recovered/Not Resolved]
  - Dyspnoea [Not Recovered/Not Resolved]
  - Menorrhagia [Recovered/Resolved]
  - Abdominal pain [Not Recovered/Not Resolved]
  - Epistaxis [Recovered/Resolved]
  - Nasal dryness [Unknown]
  - Fatigue [Recovered/Resolved]
  - Nausea [Recovered/Resolved]
